FAERS Safety Report 4823765-3 (Version None)
Quarter: 2005Q4

REPORT INFORMATION
  Report Type: 
  Country: None (occurrence: None)
  Receive Date: 20051109
  Receipt Date: 20051102
  Transmission Date: 20060501
  Serious: Yes (Hospitalization)
  Sender: FDA-Public Use
  Company Number: US-BRACCO-BDI-007696

PATIENT
  Sex: Male
  Weight: 81 kg

DRUGS (2)
  1. PROHANCE                           /01180801/ [Suspect]
     Route: 042
     Dates: start: 20051101, end: 20051101
  2. PROHANCE                           /01180801/ [Suspect]
     Indication: NUCLEAR MAGNETIC RESONANCE IMAGING BRAIN
     Route: 042
     Dates: start: 20051101, end: 20051101

REACTIONS (7)
  - BLOOD PRESSURE IMMEASURABLE [None]
  - CARDIAC FAILURE CONGESTIVE [None]
  - COLD SWEAT [None]
  - DEPRESSED LEVEL OF CONSCIOUSNESS [None]
  - HYPOTONIA [None]
  - SWOLLEN TONGUE [None]
  - VOMITING [None]
